FAERS Safety Report 10365583 (Version 2)
Quarter: 2014Q3

REPORT INFORMATION
  Report Type: Spontaneous
  Country: US (occurrence: US)
  Receive Date: 20140806
  Receipt Date: 20140806
  Transmission Date: 20150326
  Serious: Yes (Hospitalization, Other)
  Sender: FDA-Public Use
  Company Number: US-009507513-2010SP054431

PATIENT
  Sex: Female
  Weight: 115.67 kg

DRUGS (2)
  1. NUVARING [Suspect]
     Active Substance: ETHINYL ESTRADIOL\ETONOGESTREL
     Indication: CONTRACEPTION
  2. NUVARING [Suspect]
     Active Substance: ETHINYL ESTRADIOL\ETONOGESTREL
     Indication: MENSTRUAL CYCLE MANAGEMENT
     Dates: start: 200403, end: 200503

REACTIONS (8)
  - Deep vein thrombosis [Recovered/Resolved with Sequelae]
  - Thrombophlebitis [Not Recovered/Not Resolved]
  - Peripheral venous disease [Not Recovered/Not Resolved]
  - Peripheral vascular disorder [Unknown]
  - Off label use [Unknown]
  - Pneumonia [Unknown]
  - Diabetes mellitus [Unknown]
  - Fluid retention [Unknown]

NARRATIVE: CASE EVENT DATE: 2005
